FAERS Safety Report 7228429-7 (Version None)
Quarter: 2011Q1

REPORT INFORMATION
  Report Type: 
  Country: None (occurrence: None)
  Receive Date: 20110114
  Receipt Date: 20110105
  Transmission Date: 20110831
  Serious: Yes (Other)
  Sender: FDA-Public Use
  Company Number: GB-MERCK-1007GBR00039

PATIENT
  Age: 34 Year
  Sex: Female

DRUGS (6)
  1. ZIDOVUDINE [Concomitant]
     Route: 065
     Dates: start: 20090101, end: 20100610
  2. LOPINAVIR AND RITONAVIR [Concomitant]
     Route: 065
     Dates: start: 20100610
  3. TENOFOVIR [Concomitant]
     Route: 065
     Dates: start: 20100610
  4. LAMIVUDINE [Concomitant]
     Route: 065
     Dates: start: 20090101, end: 20100610
  5. ISENTRESS [Suspect]
     Indication: HIV INFECTION
     Route: 048
     Dates: start: 20100610
  6. NEVIRAPINE [Concomitant]
     Route: 065
     Dates: start: 20090101, end: 20100610

REACTIONS (2)
  - DRUG EXPOSURE DURING PREGNANCY [None]
  - ADVERSE EVENT [None]
